FAERS Safety Report 6497872-6 (Version None)
Quarter: 2009Q4

REPORT INFORMATION
  Report Type: 
  Country: None (occurrence: None)
  Receive Date: 20091215
  Receipt Date: 20091208
  Transmission Date: 20100525
  Serious: Yes (Hospitalization)
  Sender: FDA-Public Use
  Company Number: DE-WYE-G05081909

PATIENT
  Sex: Female

DRUGS (4)
  1. TREVILOR RETARD [Suspect]
     Dosage: THERAPEUTIC DOSE REGIMEN UNKNOWN; OVERDOSE AMOUNT ON 07-DEC-2009
     Route: 048
  2. PROMETHAZINE [Suspect]
     Dosage: THERAPEUTIC DOSE REGIMEN UNKNOWN; OVERDOSE AMOUNT ON 07-DEC-2009
     Route: 048
  3. VALDOXAN [Suspect]
     Dosage: THERAPEUTIC DOSE REGIMEN UNKNOWN; OVERDOSE AMOUNT ON 07-DEC-2009
     Route: 048
  4. ALCOHOL [Suspect]
     Dosage: UNKNOWN AMOUNT
     Route: 048
     Dates: start: 20091207, end: 20091207

REACTIONS (6)
  - BREATH ODOUR [None]
  - FEELING DRUNK [None]
  - INTENTIONAL OVERDOSE [None]
  - SOMNOLENCE [None]
  - SUICIDE ATTEMPT [None]
  - TACHYCARDIA [None]
